FAERS Safety Report 6216285-5 (Version None)
Quarter: 2009Q2

REPORT INFORMATION
  Report Type: 
  Country: None (occurrence: None)
  Receive Date: 20090605
  Receipt Date: 20090529
  Transmission Date: 20091009
  Serious: Yes (Other)
  Sender: FDA-Public Use
  Company Number: NL-GILEAD-2009-0022382

PATIENT
  Sex: Female

DRUGS (2)
  1. HEPSERA [Suspect]
  2. INTERFERON [Suspect]

REACTIONS (1)
  - ABORTION [None]
